FAERS Safety Report 5148215-1 (Version None)
Quarter: 2006Q4

REPORT INFORMATION
  Report Type: 
  Country: None (occurrence: None)
  Receive Date: 20060918
  Receipt Date: 20060130
  Transmission Date: 20070319
  Serious: Yes (Hospitalization)
  Sender: FDA-Public Use
  Company Number: US-JNJFOC-20060200839

PATIENT
  Age: 35 Year
  Sex: Male

DRUGS (5)
  1. TOPIRAMATE [Suspect]
     Indication: EPILEPSY
     Dosage: 200 MG, IN 1 DAY, ORAL
     Route: 048
  2. URBANYL (CLOBAZAM) [Suspect]
     Indication: EPILEPSY
     Dosage: 15 MG, IN 1 DAY, ORAL
     Route: 048
  3. VALPROIC ACID [Suspect]
     Indication: EPILEPSY
     Dosage: 3000 MG, ORAL
     Route: 048
     Dates: end: 20050101
  4. VALPROIC ACID [Suspect]
     Indication: EPILEPSY
     Dosage: 3000 MG, ORAL
     Route: 048
     Dates: start: 20050101
  5. CLONAZEPAM [Suspect]
     Indication: EPILEPSY
     Dosage: 6 MG, IN 1 DAY, ORAL
     Route: 048

REACTIONS (1)
  - THROMBOCYTOPENIA [None]
